FAERS Safety Report 5894941-6 (Version None)
Quarter: 2008Q3

REPORT INFORMATION
  Report Type: 
  Country: None (occurrence: None)
  Receive Date: 20080924
  Receipt Date: 20080917
  Transmission Date: 20090109
  Serious: Yes (Congenital Anomaly, Other)
  Sender: FDA-Public Use
  Company Number: PHHY2008GB22138

PATIENT
  Sex: Female

DRUGS (2)
  1. TEGRETOL [Suspect]
     Route: 064
  2. CLOBAZAM [Concomitant]
     Dosage: UNK
     Route: 064
     Dates: start: 20080501, end: 20080601

REACTIONS (3)
  - ANORECTAL DISORDER [None]
  - DRUG EXPOSURE DURING PREGNANCY [None]
  - PREMATURE BABY [None]
